FAERS Safety Report 9238897 (Version 3)
Quarter: 2013Q2

REPORT INFORMATION
  Report Type: Spontaneous
  Country: JP (occurrence: JP)
  Receive Date: 20130418
  Receipt Date: 20130621
  Transmission Date: 20140414
  Serious: Yes (Hospitalization, Disabling, Other)
  Sender: FDA-Public Use
  Company Number: JP-B.I. PHARMACEUTICALS,INC./RIDGEFIELD-2013-BI-09810NB

PATIENT
  Age: 84 Year
  Sex: Male
  Weight: 61.7 kg

DRUGS (12)
  1. TRAZENTA [Suspect]
     Indication: TYPE 2 DIABETES MELLITUS
     Dosage: 5 MG
     Route: 048
     Dates: start: 20130325, end: 20130410
  2. MUCOSOLVAN [Concomitant]
     Indication: ASTHMA
     Dosage: 45 MG
     Route: 065
  3. AMLODIPINE [Concomitant]
     Indication: HYPERTENSION
     Dosage: 5 MG
     Route: 065
     Dates: end: 20130417
  4. KIPRES [Concomitant]
     Indication: ASTHMA
     Dosage: 10 MG
     Route: 065
     Dates: start: 20130316
  5. PURSENNID [Concomitant]
     Indication: CONSTIPATION
     Dosage: 12 MG
     Route: 065
  6. TANATRIL [Concomitant]
     Dosage: 5 MG
     Route: 065
     Dates: start: 20130328
  7. LASIX [Concomitant]
     Indication: CARDIAC FAILURE
     Dosage: 20 MG
     Route: 065
     Dates: start: 20130328, end: 20130407
  8. DEPAS [Concomitant]
     Dosage: 0.5 MG
     Route: 065
  9. ADOAIR [Concomitant]
     Route: 055
     Dates: start: 20130316
  10. ACDEAM [Concomitant]
     Dosage: 90 MG
     Route: 065
     Dates: start: 20130322
  11. STERI NEB CROMOLYN [Concomitant]
     Route: 055
     Dates: start: 20130322
  12. MEPTIN [Concomitant]
     Route: 055
     Dates: start: 20130322

REACTIONS (1)
  - Renal failure acute [Recovered/Resolved with Sequelae]
